FAERS Safety Report 8201424-7 (Version None)
Quarter: 2012Q1

REPORT INFORMATION
  Report Type: 
  Country: None (occurrence: None)
  Receive Date: 20120312
  Receipt Date: 20120308
  Transmission Date: 20120608
  Serious: Yes (Hospitalization)
  Sender: FDA-Public Use
  Company Number: TR-GLAXOSMITHKLINE-B0787345A

PATIENT
  Sex: Male

DRUGS (1)
  1. NIQUITIN CQ 4MG LOZENGE, MINT [Suspect]
     Indication: EX-TOBACCO USER
     Dosage: 5LOZ PER DAY
     Route: 002
     Dates: start: 20120306, end: 20120308

REACTIONS (5)
  - DYSPEPSIA [None]
  - DRUG PRESCRIBING ERROR [None]
  - INCORRECT DOSE ADMINISTERED [None]
  - CHEST PAIN [None]
  - PALLOR [None]
